FAERS Safety Report 17649916 (Version 1)
Quarter: 2020Q2

REPORT INFORMATION
  Report Type: Spontaneous
  Country: US (occurrence: US)
  Receive Date: 20200408
  Receipt Date: 20200408
  Transmission Date: 20200713
  Serious: No
  Sender: FDA-Public Use
  Company Number: None

PATIENT
  Age: 39 Year
  Sex: Female
  Weight: 70.76 kg

DRUGS (1)
  1. BUPRENORPHINE NALOXONE 2/2.5 MG [Suspect]
     Active Substance: BUPRENORPHINE\NALOXONE
     Indication: DRUG DEPENDENCE
     Dosage: ?          OTHER FREQUENCY:7/8 QD;?
     Route: 060

REACTIONS (2)
  - Rash [None]
  - Pollakiuria [None]

NARRATIVE: CASE EVENT DATE: 20200229
